FAERS Safety Report 24914179 (Version 2)
Quarter: 2025Q1

REPORT INFORMATION
  Report Type: Report from Study
  Country: US (occurrence: US)
  Receive Date: 20250202
  Receipt Date: 20250213
  Transmission Date: 20250408
  Serious: No
  Sender: ABBVIE
  Company Number: US-ABBVIE-6109113

PATIENT
  Age: 20 Year
  Sex: Female
  Weight: 60.327 kg

DRUGS (4)
  1. HUMIRA [Suspect]
     Active Substance: ADALIMUMAB
     Indication: Colitis ulcerative
     Dosage: CITRATE FREE. FORM STRENGTH: 40 MG
     Route: 030
     Dates: start: 2021, end: 20250110
  2. HUMIRA [Suspect]
     Active Substance: ADALIMUMAB
     Dosage: CITRATE FREE. FORM STRENGTH: 40 MG
     Route: 058
     Dates: end: 20091001
  3. ALBUTEROL [Concomitant]
     Active Substance: ALBUTEROL
     Indication: Product used for unknown indication
  4. XOPENEX [Concomitant]
     Active Substance: LEVALBUTEROL HYDROCHLORIDE
     Indication: Asthma

REACTIONS (1)
  - Incorrect route of product administration [Unknown]
